FAERS Safety Report 20702608 (Version 1)
Quarter: 2022Q2

REPORT INFORMATION
  Report Type: Spontaneous
  Country: HU (occurrence: HU)
  Receive Date: 20220412
  Receipt Date: 20220412
  Transmission Date: 20220721
  Serious: Yes (Hospitalization)
  Sender: FDA-Public Use
  Company Number: HU-BIOGEN-2022BI01112855

PATIENT
  Age: 49 Year
  Sex: Female

DRUGS (1)
  1. TECFIDERA [Suspect]
     Active Substance: DIMETHYL FUMARATE
     Indication: Relapsing-remitting multiple sclerosis
     Route: 048
     Dates: start: 20210506

REACTIONS (8)
  - Benign ovarian tumour [Unknown]
  - COVID-19 [Unknown]
  - Bronchitis [Unknown]
  - Pyrexia [Unknown]
  - Malaise [Unknown]
  - Leukopenia [Unknown]
  - Lymphopenia [Unknown]
  - Diarrhoea [Unknown]

NARRATIVE: CASE EVENT DATE: 20210520
